FAERS Safety Report 10557732 (Version 5)
Quarter: 2014Q4

REPORT INFORMATION
  Report Type: Report from Study
  Country: GB (occurrence: GB)
  Receive Date: 20141031
  Receipt Date: 20141218
  Transmission Date: 20150529
  Serious: Yes (Death, Hospitalization, Other)
  Sender: FDA-Public Use
  Company Number: GB-B.I. PHARMACEUTICALS,INC./RIDGEFIELD-2014-BI-50568UK

PATIENT
  Age: 33 Year
  Sex: Female
  Weight: 80.6 kg

DRUGS (3)
  1. BIBF 1120 [Suspect]
     Active Substance: NINTEDANIB
     Indication: NON-SMALL CELL LUNG CANCER RECURRENT
     Dosage: 400 MG
     Route: 048
     Dates: start: 20140808, end: 20141016
  2. DOCETAXEL. [Concomitant]
     Active Substance: DOCETAXEL
     Dosage: ROUTE-INTRAVENOUS INFUSION OVER ONE HOUR, FORMULATION: INJECTION CONCENTRATE, DOSE PER APPLICATION A
     Route: 050
     Dates: start: 20140801, end: 20141002
  3. DOCETAXEL. [Concomitant]
     Active Substance: DOCETAXEL
     Indication: NON-SMALL CELL LUNG CANCER RECURRENT
     Dosage: FORMULATION: INJECTION CONCENTRATE, DOSE PER APPLICATION AND DAILY DOSE: 75MG/M2
     Route: 042
     Dates: start: 20140911

REACTIONS (7)
  - Oesophagitis [Recovered/Resolved]
  - Rash [Not Recovered/Not Resolved]
  - Pulmonary embolism [Fatal]
  - Pleural effusion [Not Recovered/Not Resolved]
  - Cerebrovascular accident [Recovered/Resolved]
  - Pericardial effusion [Not Recovered/Not Resolved]
  - Nausea [Not Recovered/Not Resolved]

NARRATIVE: CASE EVENT DATE: 20141012
